FAERS Safety Report 18777844 (Version 4)
Quarter: 2021Q4

REPORT INFORMATION
  Report Type: Spontaneous
  Country: US (occurrence: US)
  Receive Date: 20210122
  Receipt Date: 20211102
  Transmission Date: 20220303
  Serious: No
  Sender: FDA-Public Use
  Company Number: US-SEATTLE GENETICS-2020SGN03833

PATIENT
  Sex: Female

DRUGS (13)
  1. TUKYSA [Suspect]
     Active Substance: TUCATINIB
     Indication: Breast cancer female
     Dosage: UNK
     Route: 065
  2. TUKYSA [Suspect]
     Active Substance: TUCATINIB
     Dosage: 250 MG, BID
  3. TUKYSA [Suspect]
     Active Substance: TUCATINIB
     Dosage: UNK
  4. TUKYSA [Suspect]
     Active Substance: TUCATINIB
     Dosage: UNK
  5. TUKYSA [Suspect]
     Active Substance: TUCATINIB
     Dosage: UNK
  6. TUKYSA [Suspect]
     Active Substance: TUCATINIB
     Dosage: UNK
  7. TUKYSA [Suspect]
     Active Substance: TUCATINIB
     Dosage: UNK
  8. TUKYSA [Suspect]
     Active Substance: TUCATINIB
     Dosage: 50 MG
  9. TUKYSA [Suspect]
     Active Substance: TUCATINIB
     Dosage: 150 MG
  10. CAPECITABINE [Suspect]
     Active Substance: CAPECITABINE
     Indication: Breast cancer female
     Dosage: UNK
  11. CAPECITABINE [Suspect]
     Active Substance: CAPECITABINE
     Dosage: 1500MG QAM,1000MG QPM
     Route: 065
  12. MODERNA COVID-19 VACCINE [Suspect]
     Active Substance: CX-024414
     Indication: Product used for unknown indication
  13. KEPPRA [Concomitant]
     Active Substance: LEVETIRACETAM
     Dosage: 1500MG TWICE DAILY

REACTIONS (18)
  - Photosensitivity reaction [Unknown]
  - Recall phenomenon [Unknown]
  - Faeces soft [Unknown]
  - White blood cell count decreased [Recovering/Resolving]
  - Skin hypertrophy [Unknown]
  - Unevaluable event [Unknown]
  - Blood creatinine increased [Unknown]
  - Pain in extremity [Unknown]
  - Administration site pain [Unknown]
  - Memory impairment [Unknown]
  - Drug ineffective [Unknown]
  - Blood potassium decreased [Unknown]
  - Palmar-plantar erythrodysaesthesia syndrome [Recovering/Resolving]
  - Hepatic enzyme increased [Unknown]
  - Rash [Unknown]
  - Nausea [Unknown]
  - Diarrhoea [Recovering/Resolving]
  - Product dose omission issue [Unknown]
